FAERS Safety Report 23339593 (Version 1)
Quarter: 2023Q4

REPORT INFORMATION
  Report Type: Spontaneous
  Country: CZ (occurrence: None)
  Receive Date: 20231226
  Receipt Date: 20231226
  Transmission Date: 20240110
  Serious: Yes (Hospitalization, Other)
  Sender: FDA-Public Use
  Company Number: 2023A293284

PATIENT
  Age: 69 Year
  Sex: Female

DRUGS (3)
  1. ACALABRUTINIB [Suspect]
     Active Substance: ACALABRUTINIB
     Indication: Chronic lymphocytic leukaemia
     Route: 048
  2. ACALABRUTINIB [Suspect]
     Active Substance: ACALABRUTINIB
     Indication: Chronic lymphocytic leukaemia
     Route: 048
  3. DEXAMETHASONE [Concomitant]
     Active Substance: DEXAMETHASONE
     Dosage: 40 MG FOR 4 DAYS

REACTIONS (8)
  - Hospitalisation [Recovering/Resolving]
  - Hypercalcaemia of malignancy [Recovering/Resolving]
  - Chest pain [Recovering/Resolving]
  - Hypopharyngeal cancer [Recovering/Resolving]
  - Somnolence [Recovering/Resolving]
  - Sopor [Recovering/Resolving]
  - Coronavirus infection [Recovering/Resolving]
  - Encephalitis [Recovering/Resolving]
